FAERS Safety Report 9557957 (Version 1)
Quarter: 2013Q3

REPORT INFORMATION
  Report Type: Spontaneous
  Country: US (occurrence: US)
  Receive Date: 20130926
  Receipt Date: 20130926
  Transmission Date: 20140515
  Serious: No
  Sender: FDA-Public Use
  Company Number: US-TEVA-434417USA

PATIENT
  Age: 64 Year
  Sex: Female
  Weight: 90.8 kg

DRUGS (2)
  1. COPAXONE [Suspect]
     Indication: MULTIPLE SCLEROSIS
     Dates: end: 201309
  2. BETASERON [Suspect]

REACTIONS (2)
  - Urticaria [Not Recovered/Not Resolved]
  - Nervous system disorder [Recovered/Resolved]
